FAERS Safety Report 17777933 (Version 2)
Quarter: 2020Q3

REPORT INFORMATION
  Report Type: Spontaneous
  Country: BR (occurrence: BR)
  Receive Date: 20200513
  Receipt Date: 20200810
  Transmission Date: 20201102
  Serious: No
  Sender: FDA-Public Use
  Company Number: BR-SHIRE-BR202016062

PATIENT

DRUGS (1)
  1. MESACOL MMX [Suspect]
     Active Substance: MESALAMINE
     Indication: GASTROINTESTINAL INFLAMMATION
     Dosage: 1 DOSAGE FORM, 1X/DAY:QD
     Route: 048
     Dates: start: 201911, end: 201911

REACTIONS (6)
  - Speech disorder [Unknown]
  - Dyspnoea [Unknown]
  - Bronchospasm [Unknown]
  - Underdose [Unknown]
  - Ill-defined disorder [Unknown]
  - Product use in unapproved indication [Unknown]

NARRATIVE: CASE EVENT DATE: 201911
